FAERS Safety Report 25926454 (Version 1)
Quarter: 2025Q4

REPORT INFORMATION
  Report Type: Spontaneous
  Country: US (occurrence: None)
  Receive Date: 20251015
  Receipt Date: 20251015
  Transmission Date: 20260117
  Serious: Yes (Hospitalization)
  Sender: FDA-CTU
  Company Number: None

PATIENT
  Sex: Female

DRUGS (1)
  1. SKYRIZI [Suspect]
     Active Substance: RISANKIZUMAB-RZAA
     Indication: Psoriasis
     Dosage: 150 MG EVERY 12 WEEKZS SUBCUTANEOUS
     Route: 058
     Dates: start: 20250515

REACTIONS (4)
  - Blood glucose increased [None]
  - Blood pressure measurement [None]
  - Vertigo [None]
  - Nausea [None]
